FAERS Safety Report 25472133 (Version 2)
Quarter: 2025Q3

REPORT INFORMATION
  Report Type: Spontaneous
  Country: US (occurrence: US)
  Receive Date: 20250624
  Receipt Date: 20250826
  Transmission Date: 20251021
  Serious: Yes (Other)
  Sender: RISING PHARMACEUTICALS
  Company Number: US-RISINGPHARMA-US-2025RISSPO00279

PATIENT
  Age: 70 Year
  Sex: Female

DRUGS (2)
  1. MAGNESIUM OXIDE [Suspect]
     Active Substance: MAGNESIUM OXIDE
     Indication: Product used for unknown indication
     Route: 048
     Dates: start: 202505
  2. MAGNESIUM OXIDE [Suspect]
     Active Substance: MAGNESIUM OXIDE

REACTIONS (6)
  - Rectal injury [Unknown]
  - Colon injury [Unknown]
  - Drug ineffective [Unknown]
  - Product solubility abnormal [Unknown]
  - Product physical issue [Unknown]
  - Product residue present [Unknown]
